FAERS Safety Report 11687341 (Version 1)
Quarter: 2015Q4

REPORT INFORMATION
  Report Type: Report from Study
  Country: US (occurrence: US)
  Receive Date: 20151030
  Receipt Date: 20151030
  Transmission Date: 20160304
  Serious: Yes (Other)
  Sender: FDA-Public Use
  Company Number: US-ABBVIE-15K-163-1487232-00

PATIENT
  Age: 43 Year
  Sex: Female

DRUGS (1)
  1. HUMIRA [Suspect]
     Active Substance: ADALIMUMAB
     Indication: ANKYLOSING SPONDYLITIS
     Route: 058
     Dates: start: 20150227, end: 201508

REACTIONS (3)
  - Abdominal pain [Unknown]
  - Nodule [Unknown]
  - Benign hepatic neoplasm [Unknown]

NARRATIVE: CASE EVENT DATE: 20150824
